FAERS Safety Report 13088958 (Version 1)
Quarter: 2017Q1

REPORT INFORMATION
  Report Type: Spontaneous
  Country: US (occurrence: US)
  Receive Date: 20170104
  Receipt Date: 20170104
  Transmission Date: 20170428
  Serious: Yes (Hospitalization)
  Sender: FDA-Public Use
  Company Number: None

PATIENT
  Age: 73 Year
  Sex: Female
  Weight: 113.7 kg

DRUGS (1)
  1. AMIODARONE [Suspect]
     Active Substance: AMIODARONE
     Route: 048
     Dates: start: 20160612

REACTIONS (5)
  - Septic shock [None]
  - Cellulitis [None]
  - Vision blurred [None]
  - Toxicity to various agents [None]
  - Abscess [None]

NARRATIVE: CASE EVENT DATE: 20160812
